FAERS Safety Report 23584361 (Version 1)
Quarter: 2024Q1

REPORT INFORMATION
  Report Type: Spontaneous
  Country: FR (occurrence: FR)
  Receive Date: 20240301
  Receipt Date: 20240301
  Transmission Date: 20240409
  Serious: Yes (Other)
  Sender: FDA-Public Use
  Company Number: FR-GSKCCFEMEA-Case-01919869_AE-80627

PATIENT

DRUGS (1)
  1. LAMICTAL [Suspect]
     Active Substance: LAMOTRIGINE
     Indication: Epilepsy
     Dosage: UNK
     Dates: start: 202402

REACTIONS (10)
  - Angina pectoris [Unknown]
  - Headache [Unknown]
  - Condition aggravated [Unknown]
  - Neck pain [Unknown]
  - Pain in jaw [Unknown]
  - Pain in extremity [Unknown]
  - Nausea [Unknown]
  - Dry mouth [Unknown]
  - Peripheral coldness [Unknown]
  - Insomnia [Unknown]

NARRATIVE: CASE EVENT DATE: 20240201
